FAERS Safety Report 24292195 (Version 1)
Quarter: 2024Q3

REPORT INFORMATION
  Report Type: Spontaneous
  Country: US (occurrence: None)
  Receive Date: 20240906
  Receipt Date: 20240906
  Transmission Date: 20241016
  Serious: No
  Sender: DOMPE FARMACEUTICI
  Company Number: US-FARMAPROD-202307-2196

PATIENT
  Sex: Female

DRUGS (12)
  1. OXERVATE [Suspect]
     Active Substance: CENEGERMIN-BKBJ
     Indication: Neurotrophic keratopathy
     Route: 047
     Dates: start: 20230720
  2. OZURDEX [Concomitant]
     Active Substance: DEXAMETHASONE
  3. DAFLONEX-XL [Concomitant]
  4. ESCITALOPRAM OXALATE [Concomitant]
     Active Substance: ESCITALOPRAM OXALATE
  5. COZAAR [Concomitant]
     Active Substance: LOSARTAN POTASSIUM
  6. VALACYCLOVIR [Concomitant]
     Active Substance: VALACYCLOVIR HYDROCHLORIDE
  7. ZIRGAN [Concomitant]
     Active Substance: GANCICLOVIR
  8. SYSTANE GEL [Concomitant]
  9. SYSTANE COMPLETE PF [Concomitant]
     Active Substance: PROPYLENE GLYCOL
  10. CALCIUM [Concomitant]
     Active Substance: CALCIUM
     Dosage: 500(1250)
  11. VITAMINS [Concomitant]
     Active Substance: VITAMINS
  12. ASPIRIN [Concomitant]
     Active Substance: ASPIRIN

REACTIONS (3)
  - Eye pain [Unknown]
  - Periorbital pain [Unknown]
  - Product administered at inappropriate site [Unknown]
